FAERS Safety Report 9473921 (Version 2)
Quarter: 2013Q3

REPORT INFORMATION
  Report Type: Spontaneous
  Country: US (occurrence: US)
  Receive Date: 20130823
  Receipt Date: 20130823
  Transmission Date: 20140515
  Serious: Yes (Other)
  Sender: FDA-Public Use
  Company Number: US-BRISTOL-MYERS SQUIBB COMPANY-17141193

PATIENT
  Age: 54 Year
  Sex: Female
  Weight: 78.91 kg

DRUGS (5)
  1. SPRYCEL [Suspect]
     Indication: CHRONIC MYELOID LEUKAEMIA
     Route: 048
  2. PROZAC [Concomitant]
  3. AMBIEN CR [Concomitant]
  4. XANAX [Concomitant]
  5. VITAMIN D [Concomitant]

REACTIONS (3)
  - Electrocardiogram QT prolonged [Unknown]
  - Blood urine present [Unknown]
  - White blood cells urine [Unknown]
